FAERS Safety Report 9984843 (Version 1)
Quarter: 2014Q1

REPORT INFORMATION
  Report Type: Report from Study
  Country: US (occurrence: US)
  Receive Date: 20140307
  Receipt Date: 20140307
  Transmission Date: 20141002
  Serious: No
  Sender: FDA-Public Use
  Company Number: US-ABBVIE-14P-163-1186003-00

PATIENT
  Age: 25 Year
  Sex: Male

DRUGS (4)
  1. HUMIRA [Suspect]
     Indication: CROHN^S DISEASE
     Dates: start: 201311
  2. MERCAPTOPURINE [Concomitant]
     Indication: CROHN^S DISEASE
     Dosage: MOM THINKS HE TAKES MEDICATION TWICE A DAY
  3. PENTASA [Concomitant]
     Indication: CROHN^S DISEASE
     Dosage: MOM THINKS HE TAKES MEDICATION TWICE A DAY
  4. BUDESONIDE [Concomitant]
     Indication: CROHN^S DISEASE
     Dosage: MOM THINKS HE TAKES MEDICATION TWICE A DAY

REACTIONS (2)
  - Rash [Not Recovered/Not Resolved]
  - Rash macular [Not Recovered/Not Resolved]
